FAERS Safety Report 14678464 (Version 1)
Quarter: 2018Q1

REPORT INFORMATION
  Report Type: Spontaneous
  Country: US (occurrence: US)
  Receive Date: 20180326
  Receipt Date: 20180326
  Transmission Date: 20180509
  Serious: No
  Sender: FDA-Public Use
  Company Number: US-ASTRAZENECA-2018SE34420

PATIENT
  Age: 50 Year
  Sex: Female

DRUGS (3)
  1. MOVANTIK [Suspect]
     Active Substance: NALOXEGOL OXALATE
     Indication: CONSTIPATION
     Route: 048
     Dates: start: 20170111
  2. FENTANYL. [Concomitant]
     Active Substance: FENTANYL
     Dosage: 50.0UG UNKNOWN
     Route: 065
     Dates: start: 2011
  3. DICLOFENAC [Concomitant]
     Active Substance: DICLOFENAC
     Dosage: 50.0MG AS REQUIRED
     Route: 065

REACTIONS (2)
  - Diarrhoea [Recovered/Resolved]
  - Intentional product misuse [Unknown]

NARRATIVE: CASE EVENT DATE: 201702
